FAERS Safety Report 4569547-1 (Version None)
Quarter: 2005Q1

REPORT INFORMATION
  Report Type: 
  Country: None (occurrence: None)
  Receive Date: 20050201
  Receipt Date: 20050119
  Transmission Date: 20050727
  Serious: Yes (Hospitalization)
  Sender: FDA-Public Use
  Company Number: 2005014927

PATIENT
  Age: 70 Year
  Sex: Female

DRUGS (9)
  1. CELEBRA [Suspect]
     Indication: ILL-DEFINED DISORDER
     Dosage: 200 MG (200 MG, 1 IN 1 F), ORAL
     Route: 048
     Dates: end: 20030901
  2. TOLTERODINE TARTRATE [Concomitant]
  3. AMITRIPTYLINE HYDROCHLORIDE [Concomitant]
  4. WARFARIN SODIUM [Concomitant]
  5. TERBUTALINE SULFATE [Concomitant]
  6. IPRATROPIUM BORMIDE (IPRATROPIUM BROMIDE) [Concomitant]
  7. BUDESONIDE (BUDESONIDE) [Concomitant]
  8. TRIOBE (CYANOCOBALAMIN, FOLIC ACID, PYRIDOXINE) [Concomitant]
  9. FUROSEMIDE [Concomitant]

REACTIONS (3)
  - CARDIAC FAILURE [None]
  - POLYDIPSIA [None]
  - RENAL DISORDER [None]
